FAERS Safety Report 4433620-9 (Version None)
Quarter: 2004Q3

REPORT INFORMATION
  Report Type: 
  Country: None (occurrence: None)
  Receive Date: 20040826
  Receipt Date: 20040819
  Transmission Date: 20050211
  Serious: Yes (Hospitalization)
  Sender: FDA-Public Use
  Company Number: PHBS2004CH11007

PATIENT
  Age: 64 Year
  Sex: Male

DRUGS (4)
  1. CLOZAPINE [Suspect]
     Indication: BIPOLAR DISORDER
     Dosage: 600 MG/D
     Route: 065
  2. CLOZAPINE [Suspect]
     Dosage: 50 MG/D
     Route: 065
  3. VALPROATE SODIUM [Concomitant]
     Indication: AFFECTIVE DISORDER
     Dosage: 2500 MG/D
     Route: 065
  4. LITHIUM [Concomitant]
     Route: 065

REACTIONS (10)
  - ACTIVITIES OF DAILY LIVING IMPAIRED [None]
  - BRADYKINESIA [None]
  - COGWHEEL RIGIDITY [None]
  - EYE MOVEMENT DISORDER [None]
  - MANIA [None]
  - MASKED FACIES [None]
  - PARKINSON'S DISEASE [None]
  - PRE-EXISTING CONDITION IMPROVED [None]
  - REBOUND EFFECT [None]
  - TREMOR [None]
